FAERS Safety Report 16034481 (Version 2)
Quarter: 2019Q1

REPORT INFORMATION
  Report Type: Spontaneous
  Country: US (occurrence: US)
  Receive Date: 20190305
  Receipt Date: 20190320
  Transmission Date: 20190418
  Serious: No
  Sender: FDA-Public Use
  Company Number: US-PFIZER INC-2019090477

PATIENT
  Age: 34 Year
  Sex: Female
  Weight: 71.66 kg

DRUGS (1)
  1. SILDENAFIL CITRATE. [Suspect]
     Active Substance: SILDENAFIL CITRATE
     Dosage: UNK

REACTIONS (6)
  - Back pain [Unknown]
  - Aphonia [Unknown]
  - Dysphonia [Unknown]
  - Nasal congestion [Unknown]
  - Cough [Unknown]
  - Sciatica [Unknown]
